FAERS Safety Report 17214218 (Version 2)
Quarter: 2020Q1

REPORT INFORMATION
  Report Type: Spontaneous
  Country: US (occurrence: US)
  Receive Date: 20191230
  Receipt Date: 20200103
  Transmission Date: 20200409
  Serious: No
  Sender: FDA-Public Use
  Company Number: US-PFIZER INC-2019559064

PATIENT
  Age: 62 Year
  Sex: Female
  Weight: 69.84 kg

DRUGS (2)
  1. IBRANCE [Suspect]
     Active Substance: PALBOCICLIB
     Indication: BREAST CANCER
     Dosage: 125 MG, CYCLIC (DL-21 Q28 DAYS)
     Route: 048
     Dates: start: 20180622
  2. IBRANCE [Suspect]
     Active Substance: PALBOCICLIB
     Dosage: 125 MG, CYCLIC [D 1-21 Q (EVERY) 28 DAYS]
     Route: 048

REACTIONS (1)
  - Productive cough [Unknown]
